FAERS Safety Report 15631073 (Version 6)
Quarter: 2019Q1

REPORT INFORMATION
  Report Type: Report from Study
  Country: US (occurrence: US)
  Receive Date: 20181119
  Receipt Date: 20190314
  Transmission Date: 20190417
  Serious: No
  Sender: FDA-Public Use
  Company Number: US-009507513-1811USA007023

PATIENT
  Age: 41 Year
  Sex: Female

DRUGS (2)
  1. ASMANEX [Suspect]
     Active Substance: MOMETASONE FUROATE
     Indication: ASTHMA
     Dosage: STRENGTH: 200 MCG 30 DOSE UNK
     Route: 055
     Dates: start: 20181110
  2. ASMANEX [Suspect]
     Active Substance: MOMETASONE FUROATE
     Dosage: STRENGTH: 200 MCG 30 DOSE UNK
     Route: 055

REACTIONS (6)
  - Product quality issue [Unknown]
  - Product dose omission [Unknown]
  - Dyspnoea [Recovered/Resolved]
  - Dyspnoea [Unknown]
  - Poor quality device used [Unknown]
  - Product quality issue [Unknown]

NARRATIVE: CASE EVENT DATE: 201710
